FAERS Safety Report 6339019-2 (Version None)
Quarter: 2009Q3

REPORT INFORMATION
  Report Type: 
  Country: None (occurrence: None)
  Receive Date: 20090903
  Receipt Date: 20090901
  Transmission Date: 20100115
  Serious: Yes (Other)
  Sender: FDA-Public Use
  Company Number: US-RB-013899-09

PATIENT
  Sex: Female

DRUGS (3)
  1. SUBUTEX [Suspect]
     Route: 060
     Dates: start: 20090106
  2. SUBOXONE [Suspect]
     Route: 060
     Dates: start: 20080521, end: 20090105
  3. VITAMIN TAB [Concomitant]
     Indication: PREGNANCY
     Dosage: PATIENT TAKES ONE TABLET DAILY.
     Route: 048

REACTIONS (2)
  - ABORTION SPONTANEOUS [None]
  - DRUG EXPOSURE DURING PREGNANCY [None]
